FAERS Safety Report 10378253 (Version 1)
Quarter: 2014Q3

REPORT INFORMATION
  Report Type: Spontaneous
  Country: AE (occurrence: None)
  Receive Date: 20140807
  Receipt Date: 20140807
  Transmission Date: 20150326
  Serious: Yes (Other)
  Sender: FDA-Public Use
  Company Number: 2014HINLIT0686

PATIENT
  Age: 27 Year
  Sex: Female

DRUGS (4)
  1. AGOMELANTINE [Concomitant]
  2. CLONAZEPAM. [Concomitant]
     Active Substance: CLONAZEPAM
     Indication: SOMATIC DELUSION
  3. CLONAZEPAM. [Concomitant]
     Active Substance: CLONAZEPAM
  4. ESCITALOPRAM [Suspect]
     Active Substance: ESCITALOPRAM OXALATE
     Indication: DEPRESSION

REACTIONS (2)
  - Breast engorgement [None]
  - Galactorrhoea [None]
